FAERS Safety Report 9501124 (Version 2)
Quarter: 2014Q1

REPORT INFORMATION
  Report Type: Spontaneous
  Country: US (occurrence: None)
  Receive Date: 20130117
  Receipt Date: 20130719
  Transmission Date: 20141002
  Serious: Yes (Hospitalization)
  Sender: FDA-Public Use
  Company Number: 1210USA008593

PATIENT
  Age: 11 Year
  Sex: 0
  Weight: 46 kg

DRUGS (2)
  1. DULERA [Suspect]
     Indication: ASTHMA
     Dosage: 2 PUFF, BID, RESPIRATORY
     Route: 055
     Dates: start: 20120827, end: 201209
  2. DILANTIN (PHENYTOIN) (PHENYTOIN) [Concomitant]

REACTIONS (1)
  - Convulsion [None]
